FAERS Safety Report 9563416 (Version 2)
Quarter: 2013Q4

REPORT INFORMATION
  Report Type: Spontaneous
  Country: IT (occurrence: None)
  Receive Date: 20130926
  Receipt Date: 20131127
  Transmission Date: 20140711
  Serious: Yes (Other)
  Sender: FDA-Public Use
  Company Number: AUR-APL-2013-07883

PATIENT
  Age: 76 Year
  Sex: Female

DRUGS (5)
  1. ATENOLOL [Suspect]
     Indication: PRODUCT USED FOR UNKNOWN INDICATION
     Route: 048
     Dates: start: 20130101, end: 20130816
  2. OSIPINE [Suspect]
     Indication: PRODUCT USED FOR UNKNOWN INDICATION
     Route: 048
     Dates: start: 20130101, end: 20130816
  3. RYTMONORM (PROPAFENONE HYDROCHLORIDE) [Concomitant]
  4. ZOPRANOL (ZOFENOPRIL) [Concomitant]
  5. COUMADIN (COUMADIN) [Concomitant]

REACTIONS (1)
  - Presyncope [None]
